FAERS Safety Report 10098405 (Version 1)
Quarter: 2014Q2

REPORT INFORMATION
  Report Type: Spontaneous
  Country: US (occurrence: US)
  Receive Date: 20140423
  Receipt Date: 20140423
  Transmission Date: 20141212
  Serious: No
  Sender: FDA-Public Use
  Company Number: US-PFIZER INC-2014111639

PATIENT
  Sex: Female

DRUGS (1)
  1. ALPRAZOLAM [Suspect]
     Dosage: 1 MG, UNK

REACTIONS (12)
  - Cognitive disorder [Unknown]
  - Hypopnoea [Unknown]
  - Anxiety [Unknown]
  - Headache [Unknown]
  - Decreased appetite [Unknown]
  - Nausea [Unknown]
  - Vomiting [Unknown]
  - Chills [Unknown]
  - Cold sweat [Unknown]
  - Pollakiuria [Unknown]
  - Palpitations [Unknown]
  - Chest discomfort [Unknown]
